FAERS Safety Report 6054290-2 (Version None)
Quarter: 2009Q1

REPORT INFORMATION
  Report Type: 
  Country: None (occurrence: None)
  Receive Date: 20090127
  Receipt Date: 20090112
  Transmission Date: 20090719
  Serious: Yes (Hospitalization)
  Sender: FDA-Public Use
  Company Number: CA-GENENTECH-275789

PATIENT
  Sex: Female

DRUGS (1)
  1. AVASTIN [Suspect]
     Indication: OVARIAN CANCER
     Dosage: 250 MG, Q2W
     Route: 042
     Dates: start: 20081229

REACTIONS (1)
  - GASTROINTESTINAL STOMA COMPLICATION [None]
